FAERS Safety Report 25255458 (Version 1)
Quarter: 2025Q2

REPORT INFORMATION
  Report Type: Spontaneous
  Country: CZ (occurrence: CZ)
  Receive Date: 20250430
  Receipt Date: 20250430
  Transmission Date: 20250716
  Serious: Yes (Hospitalization, Other)
  Sender: BAUSCH AND LOMB
  Company Number: CZ-SA-2025SA024954

PATIENT
  Age: 3 Year
  Sex: Female
  Weight: 17 kg

DRUGS (9)
  1. DEXAMETHASONE [Suspect]
     Active Substance: DEXAMETHASONE
     Indication: Anaphylactic reaction
     Route: 042
     Dates: start: 20250115
  2. AVALGLUCOSIDASE ALFA [Suspect]
     Active Substance: AVALGLUCOSIDASE ALFA
     Indication: Glycogen storage disease type II
     Route: 065
     Dates: start: 20231210, end: 20241218
  3. AVALGLUCOSIDASE ALFA [Suspect]
     Active Substance: AVALGLUCOSIDASE ALFA
     Route: 065
     Dates: start: 20250102, end: 20250115
  4. DIMETHINDENE [Concomitant]
     Active Substance: DIMETHINDENE
     Indication: Premedication
     Route: 065
     Dates: start: 20250102
  5. SERETIDE [Concomitant]
     Active Substance: FLUTICASONE PROPIONATE\SALMETEROL XINAFOATE
     Indication: Product used for unknown indication
  6. VIGANTOL [Concomitant]
     Indication: Product used for unknown indication
     Dosage: 2 DF, QD
     Route: 048
  7. ELECTROLYTES NOS [Concomitant]
     Active Substance: ELECTROLYTES NOS
     Indication: Product used for unknown indication
  8. DEXONA [Concomitant]
     Indication: Premedication
  9. HEPARIN 1000 [Concomitant]
     Indication: Product used for unknown indication

REACTIONS (16)
  - Cough [Recovering/Resolving]
  - Crying [Recovering/Resolving]
  - Oropharyngeal pain [Recovering/Resolving]
  - Pallor [Recovering/Resolving]
  - Prolonged expiration [Recovering/Resolving]
  - Dyspnoea [Recovering/Resolving]
  - Cyanosis [Recovering/Resolving]
  - Restlessness [Recovering/Resolving]
  - Oxygen saturation abnormal [Recovering/Resolving]
  - Anaphylactic reaction [Recovering/Resolving]
  - Erythema [Recovering/Resolving]
  - Tachycardia [Recovering/Resolving]
  - Blood pressure increased [Recovering/Resolving]
  - Micturition urgency [Unknown]
  - Feeling hot [Unknown]
  - Erythema [Recovered/Resolved]

NARRATIVE: CASE EVENT DATE: 20241218
